FAERS Safety Report 18085362 (Version 1)
Quarter: 2020Q3

REPORT INFORMATION
  Report Type: Spontaneous
  Country: US (occurrence: US)
  Receive Date: 20200728
  Receipt Date: 20200728
  Transmission Date: 20201103
  Serious: Yes (Death)
  Sender: FDA-Public Use
  Company Number: None

PATIENT
  Age: 29 Year
  Sex: Male
  Weight: 141.97 kg

DRUGS (1)
  1. REMDESIVIR. [Suspect]
     Active Substance: REMDESIVIR

REACTIONS (8)
  - Brain injury [None]
  - Mental status changes [None]
  - Cardiac arrest [None]
  - Haemodialysis [None]
  - Hypotension [None]
  - Respiratory failure [None]
  - Tachycardia [None]
  - Renal failure [None]

NARRATIVE: CASE EVENT DATE: 20200721
